FAERS Safety Report 26190279 (Version 1)
Quarter: 2025Q4

REPORT INFORMATION
  Report Type: Spontaneous
  Country: GB (occurrence: GB)
  Receive Date: 20251223
  Receipt Date: 20251223
  Transmission Date: 20260118
  Serious: Yes (Other)
  Sender: MICRO LABS LIMITED
  Company Number: None

PATIENT
  Age: 20 Year
  Sex: Female
  Weight: 51 kg

DRUGS (1)
  1. AMOXICILLIN [Suspect]
     Active Substance: AMOXICILLIN
     Indication: Product used for unknown indication

REACTIONS (2)
  - Lip pain [Recovered/Resolved]
  - Lip swelling [Recovered/Resolved]
